FAERS Safety Report 9272832 (Version 1)
Quarter: 2013Q2

REPORT INFORMATION
  Report Type: Spontaneous
  Country: US (occurrence: US)
  Receive Date: 20130506
  Receipt Date: 20130506
  Transmission Date: 20140414
  Serious: No
  Sender: FDA-Public Use
  Company Number: US-ASTRAZENECA-2012SE31659

PATIENT
  Sex: 0

DRUGS (6)
  1. PRILOSEC OTC [Suspect]
     Indication: DYSPEPSIA
     Dosage: UNK DOSE, UNK FREQ FOR 7 DAYS
     Route: 048
  2. PRILOSEC OTC [Suspect]
     Indication: CHEST PAIN
     Dosage: UNK DOSE, UNK FREQ FOR 7 DAYS
     Route: 048
  3. PRILOSEC OTC [Suspect]
     Indication: OROPHARYNGEAL PAIN
     Dosage: UNK DOSE, UNK FREQ FOR 7 DAYS
     Route: 048
  4. PRILOSEC OTC [Suspect]
     Indication: DYSPEPSIA
     Route: 048
  5. PRILOSEC OTC [Suspect]
     Indication: CHEST PAIN
     Route: 048
  6. PRILOSEC OTC [Suspect]
     Indication: OROPHARYNGEAL PAIN
     Route: 048

REACTIONS (2)
  - Off label use [Unknown]
  - Drug ineffective [Unknown]
